FAERS Safety Report 9713414 (Version 1)
Quarter: 2013Q4

REPORT INFORMATION
  Report Type: Spontaneous
  Country: FR (occurrence: FR)
  Receive Date: 20131126
  Receipt Date: 20131126
  Transmission Date: 20140711
  Serious: Yes (Hospitalization)
  Sender: FDA-Public Use
  Company Number: FR-PFIZER INC-2013332318

PATIENT
  Age: 58 Year
  Sex: Male

DRUGS (6)
  1. FLUOROURACILE PFIZER [Suspect]
     Indication: RECTAL ADENOCARCINOMA
     Dosage: UNK
     Route: 042
     Dates: start: 20130923, end: 20131012
  2. OXALIPLATIN [Concomitant]
     Indication: RECTAL ADENOCARCINOMA
     Dosage: UNK
  3. FOLINIC ACID [Concomitant]
     Indication: RECTAL ADENOCARCINOMA
  4. INEXIUM [Concomitant]
     Dosage: 40 MG, 1X/DAY
  5. IMOVANE [Concomitant]
     Dosage: 3.75 MG, 2 TABLETS IN EVENING
  6. DAFALGAN [Concomitant]
     Dosage: AS NEEDED

REACTIONS (1)
  - Febrile neutropenia [Recovered/Resolved]
